FAERS Safety Report 6525488-1 (Version None)
Quarter: 2010Q1

REPORT INFORMATION
  Report Type: 
  Country: None (occurrence: None)
  Receive Date: 20100104
  Receipt Date: 20091221
  Transmission Date: 20100710
  Serious: Yes (Hospitalization)
  Sender: FDA-Public Use
  Company Number: CN-SANOFI-AVENTIS-2009SA009935

PATIENT
  Age: 58 Year
  Sex: Male
  Weight: 61 kg

DRUGS (33)
  1. DOCETAXEL [Suspect]
     Indication: GASTRIC CANCER
     Route: 041
     Dates: start: 20090818, end: 20090818
  2. DOCETAXEL [Suspect]
     Route: 041
     Dates: start: 20091119, end: 20091119
  3. CISPLATIN [Suspect]
     Indication: GASTRIC CANCER
     Route: 065
     Dates: start: 20090818, end: 20090818
  4. CISPLATIN [Suspect]
     Route: 065
     Dates: start: 20091119, end: 20091119
  5. FLUOROURACIL [Suspect]
     Indication: GASTRIC CANCER
     Route: 065
     Dates: start: 20090818, end: 20090818
  6. FLUOROURACIL [Suspect]
     Route: 065
     Dates: start: 20091123, end: 20091123
  7. GRANISETRON [Concomitant]
     Route: 065
     Dates: start: 20091119, end: 20091120
  8. DEXAMETHASONE [Concomitant]
     Route: 065
     Dates: start: 20091118, end: 20091120
  9. DEXAMETHASONE [Concomitant]
     Route: 065
     Dates: start: 20091124, end: 20091124
  10. POTASSIUM CHLORIDE [Concomitant]
     Route: 065
     Dates: start: 20091125
  11. POTASSIUM CHLORIDE [Concomitant]
     Route: 065
     Dates: start: 20091119, end: 20091120
  12. POTASSIUM CHLORIDE [Concomitant]
     Route: 065
     Dates: start: 20091121, end: 20091121
  13. POTASSIUM CHLORIDE [Concomitant]
     Route: 065
     Dates: start: 20091123, end: 20091123
  14. MANNITOL [Concomitant]
     Route: 065
     Dates: start: 20091119, end: 20091119
  15. FUROSEMIDE [Concomitant]
     Route: 065
     Dates: start: 20091119, end: 20091121
  16. HEPARIN [Concomitant]
     Route: 065
     Dates: start: 20091119, end: 20091119
  17. HEPARIN [Concomitant]
     Route: 065
     Dates: start: 20091120, end: 20091123
  18. PROMETHAZINE [Concomitant]
     Route: 065
     Dates: start: 20091125
  19. PROMETHAZINE [Concomitant]
     Route: 065
     Dates: start: 20091121, end: 20091121
  20. METOCLOPRAMIDE [Concomitant]
     Route: 065
     Dates: start: 20091121, end: 20091122
  21. METOCLOPRAMIDE [Concomitant]
     Route: 065
     Dates: start: 20091124, end: 20091129
  22. ALL OTHER THERAPEUTIC PRODUCTS [Concomitant]
     Route: 065
     Dates: start: 20091121, end: 20091121
  23. MORPHINE [Concomitant]
     Route: 065
     Dates: start: 20091121, end: 20091121
  24. GLUCOSE W/ELECTROLYTES [Concomitant]
     Route: 065
     Dates: start: 20091123, end: 20091123
  25. GLUCOSE W/ELECTROLYTES [Concomitant]
     Route: 065
     Dates: start: 20091124, end: 20091124
  26. FAT EMULSIONS [Concomitant]
     Route: 065
     Dates: start: 20091125
  27. FAT EMULSIONS [Concomitant]
     Route: 065
     Dates: start: 20091123, end: 20091123
  28. GEFARNATE [Concomitant]
     Route: 065
     Dates: start: 20091123
  29. CHLORPROMAZINE [Concomitant]
     Route: 065
     Dates: start: 20091125
  30. TROPISETRON [Concomitant]
     Route: 065
     Dates: start: 20091125
  31. GLUCOSE [Concomitant]
     Route: 065
     Dates: start: 20091125
  32. AMINO ACIDS [Concomitant]
     Route: 065
     Dates: start: 20091125
  33. VITAMINS [Concomitant]
     Route: 065
     Dates: start: 20091125

REACTIONS (1)
  - HYPONATRAEMIA [None]
